FAERS Safety Report 23921739 (Version 4)
Quarter: 2025Q3

REPORT INFORMATION
  Report Type: Report from Study
  Country: US (occurrence: US)
  Receive Date: 20240530
  Receipt Date: 20250722
  Transmission Date: 20251020
  Serious: Yes (Death, Hospitalization, Other)
  Sender: NOVARTIS
  Company Number: US-002147023-NVSC2024US111832

PATIENT
  Age: 68 Year
  Sex: Female
  Weight: 44.444 kg

DRUGS (33)
  1. LAMPRENE [Suspect]
     Active Substance: CLOFAZIMINE
     Indication: Mycobacterium avium complex infection
     Dosage: 100 MG, BID (FORMULATION CAPSULE)
     Route: 048
     Dates: start: 20220314, end: 20230306
  2. AMIKACIN SULFATE [Concomitant]
     Active Substance: AMIKACIN SULFATE
     Indication: Product used for unknown indication
     Route: 055
     Dates: start: 20230522, end: 20240302
  3. BEDAQUILINE FUMARATE [Concomitant]
     Active Substance: BEDAQUILINE FUMARATE
     Indication: Product used for unknown indication
     Route: 055
     Dates: start: 20230306, end: 20240214
  4. CALCIUM CITRATE [Concomitant]
     Active Substance: CALCIUM CITRATE
     Indication: Product used for unknown indication
     Route: 065
     Dates: end: 20240302
  5. Biotin;Colecalciferol;Copper sulfate;Cyanocobalamin;Folic acid;Potassi [Concomitant]
     Indication: Product used for unknown indication
     Route: 065
     Dates: end: 20240302
  6. ESTRADIOL\LEVONORGESTREL [Concomitant]
     Active Substance: ESTRADIOL\LEVONORGESTREL
     Indication: Product used for unknown indication
     Route: 065
     Dates: start: 20231214, end: 20240302
  7. SODIUM CHLORIDE [Concomitant]
     Active Substance: SODIUM CHLORIDE
     Indication: Product used for unknown indication
     Route: 065
     Dates: start: 20221201, end: 20240302
  8. MORPHINE SULFATE\TACRINE HYDROCHLORIDE [Concomitant]
     Active Substance: MORPHINE SULFATE\TACRINE HYDROCHLORIDE
     Indication: Product used for unknown indication
     Route: 065
  9. VITAMINS [Concomitant]
     Active Substance: VITAMINS
     Indication: Product used for unknown indication
     Route: 048
  10. Nasal [Concomitant]
     Indication: Product used for unknown indication
     Dosage: 10 ML, QH
     Route: 042
     Dates: start: 20240203
  11. Nasal [Concomitant]
     Dosage: 10 ML, QD
     Route: 065
     Dates: start: 20240303
  12. CEFEPIME [Concomitant]
     Active Substance: CEFEPIME HYDROCHLORIDE
     Indication: Product used for unknown indication
     Route: 065
  13. OMADACYCLINE [Concomitant]
     Active Substance: OMADACYCLINE
     Indication: Product used for unknown indication
     Route: 055
     Dates: start: 20231212, end: 20240220
  14. Dextromethorphan;Guaifenesin;Terpin [Concomitant]
     Indication: Product used for unknown indication
     Dosage: 7.5 MG, Q12H
     Route: 048
     Dates: start: 20240203
  15. Guaifenesin;Theophylline [Concomitant]
     Indication: Product used for unknown indication
     Dosage: 200 MG, Q4H
     Route: 048
     Dates: start: 20240203
  16. HEPARIN SODIUM [Concomitant]
     Active Substance: HEPARIN SODIUM
     Indication: Product used for unknown indication
     Dosage: 5 ML, QD
     Route: 065
     Dates: start: 20240303
  17. ONDANSETRON [Concomitant]
     Active Substance: ONDANSETRON
     Indication: Product used for unknown indication
     Dosage: 4 MG, Q4H
     Route: 042
     Dates: start: 20240203
  18. POLYETHYLENE GLYCOL\POTASSIUM CHLORIDE\SODIUM BICARBONATE [Concomitant]
     Active Substance: POLYETHYLENE GLYCOL\POTASSIUM CHLORIDE\SODIUM BICARBONATE
     Indication: Product used for unknown indication
     Route: 048
     Dates: start: 20240303
  19. PHENERGAN [Concomitant]
     Active Substance: PROMETHAZINE HYDROCHLORIDE
     Indication: Product used for unknown indication
     Dosage: 2.5 ML, Q6H
     Route: 048
     Dates: start: 20240203
  20. MEROPENEM [Concomitant]
     Active Substance: MEROPENEM
     Indication: Product used for unknown indication
     Route: 065
  21. VITAMIN C [Concomitant]
     Active Substance: ASCORBIC ACID
     Indication: Product used for unknown indication
     Dosage: 100 MG, QD
     Route: 048
  22. Benzonatate;Diphenhydramine hydrochloride;Guaifenesin;Phenylephrine hy [Concomitant]
     Indication: Product used for unknown indication
     Dosage: 1 DOSAGE FORM, QD
     Route: 048
  23. FLUTICASONE PROPIONATE\FORMOTEROL FUMARATE [Concomitant]
     Active Substance: FLUTICASONE PROPIONATE\FORMOTEROL FUMARATE
     Indication: Product used for unknown indication
     Route: 065
     Dates: start: 20221201
  24. Gabapentin;Ketoprofen;Lidocaine [Concomitant]
     Indication: Product used for unknown indication
     Dosage: 1 DOSAGE FORM, BID
     Route: 048
     Dates: start: 20240213, end: 20240214
  25. DIETARY SUPPLEMENT [Concomitant]
     Active Substance: DIETARY SUPPLEMENT
     Indication: Product used for unknown indication
     Dosage: 1 DOSAGE FORM, QD
     Route: 048
  26. LACTOBACILLUS ACIDOPHILUS [Concomitant]
     Active Substance: LACTOBACILLUS ACIDOPHILUS
     Indication: Product used for unknown indication
     Dosage: 1 DOSAGE FORM, QD
     Route: 048
  27. XYZAL [Concomitant]
     Active Substance: LEVOCETIRIZINE DIHYDROCHLORIDE
     Indication: Product used for unknown indication
     Dosage: 1 DOSAGE FORM, QD
     Route: 048
     Dates: start: 20230824
  28. DELTASONE [Concomitant]
     Active Substance: PREDNISONE
     Indication: Product used for unknown indication
     Dosage: 10 MG, QD
     Route: 048
     Dates: start: 20240214, end: 20240220
  29. MELATONIN [Concomitant]
     Active Substance: MELATONIN
     Indication: Product used for unknown indication
     Dosage: 1 DOSAGE FORM, QD
     Route: 048
     Dates: start: 20170821
  30. TOPROL XL [Concomitant]
     Active Substance: METOPROLOL SUCCINATE
     Indication: Product used for unknown indication
     Dosage: 1 DOSAGE FORM, QD
     Route: 048
     Dates: start: 20230816, end: 20240214
  31. LANOXIN [Concomitant]
     Active Substance: DIGOXIN
     Indication: Product used for unknown indication
     Dosage: 1 DOSAGE FORM, QD AS NEEDED (STRENGTH: 125 MCG)
     Route: 048
     Dates: start: 20231127, end: 20240302
  32. MURO 128 [Concomitant]
     Active Substance: SODIUM CHLORIDE
     Indication: Product used for unknown indication
     Dosage: UNK UNK, QD
     Route: 065
     Dates: start: 20191017, end: 20240302
  33. XANAX [Concomitant]
     Active Substance: ALPRAZOLAM
     Indication: Product used for unknown indication
     Dosage: 1 DOSAGE FORM, QD
     Route: 048
     Dates: start: 20240213, end: 20240314

REACTIONS (10)
  - Acute respiratory failure [Fatal]
  - Dyspnoea [Fatal]
  - Hypercapnia [Fatal]
  - Hypoxia [Fatal]
  - Pneumonia bacterial [Unknown]
  - Constipation [Unknown]
  - Pyrexia [Unknown]
  - Chills [Unknown]
  - Pneumonia [Unknown]
  - Cough [Unknown]

NARRATIVE: CASE EVENT DATE: 20240207
